FAERS Safety Report 5719509-3 (Version None)
Quarter: 2008Q2

REPORT INFORMATION
  Report Type: 
  Country: None (occurrence: None)
  Receive Date: 20080428
  Receipt Date: 20070608
  Transmission Date: 20081010
  Serious: No
  Sender: FDA-Public Use
  Company Number: A0655114A

PATIENT
  Sex: Male

DRUGS (1)
  1. AMERGE [Suspect]
     Indication: MIGRAINE
     Dosage: 2.5MG UNKNOWN
     Dates: start: 20050101

REACTIONS (1)
  - DRUG INEFFECTIVE [None]
